FAERS Safety Report 21020395 (Version 5)
Quarter: 2023Q2

REPORT INFORMATION
  Report Type: Report from Study
  Country: CA (occurrence: CA)
  Receive Date: 20220629
  Receipt Date: 20230420
  Transmission Date: 20230722
  Serious: Yes (Hospitalization)
  Sender: FDA-Public Use
  Company Number: CA-JNJFOC-20220620196

PATIENT
  Age: 64 Year
  Sex: Female
  Weight: 99.880 kg

DRUGS (2)
  1. REMICADE [Suspect]
     Active Substance: INFLIXIMAB
     Indication: Crohn^s disease
     Dosage: LAST INFUSED ON 28-APR-2022. PATIENT RECEIVED 86TH INFLIXIMAB INFUSION OF 1000 MG ON 23-JUN-2022.?PA
     Route: 041
     Dates: start: 20110413
  2. AZATHIOPRINE [Concomitant]
     Active Substance: AZATHIOPRINE
     Indication: Crohn^s disease
     Route: 048

REACTIONS (11)
  - COVID-19 [Recovering/Resolving]
  - Ventricular tachycardia [Recovering/Resolving]
  - Epistaxis [Recovered/Resolved]
  - General physical health deterioration [Recovering/Resolving]
  - Vomiting [Recovered/Resolved]
  - Hypotension [Unknown]
  - Nausea [Recovered/Resolved]
  - Diarrhoea [Recovered/Resolved]
  - Frequent bowel movements [Recovering/Resolving]
  - Inappropriate schedule of product administration [Unknown]
  - Off label use [Unknown]

NARRATIVE: CASE EVENT DATE: 20220505
